FAERS Safety Report 15115262 (Version 1)
Quarter: 2018Q3

REPORT INFORMATION
  Report Type: Spontaneous
  Country: US (occurrence: US)
  Receive Date: 20180706
  Receipt Date: 20180706
  Transmission Date: 20181010
  Serious: No
  Sender: FDA-Public Use
  Company Number: US-ALLERGAN-1824596US

PATIENT
  Sex: Female

DRUGS (1)
  1. VRAYLAR [Suspect]
     Active Substance: CARIPRAZINE
     Indication: PRODUCT USED FOR UNKNOWN INDICATION
     Dosage: 1.5 MG, QOD
     Route: 048
     Dates: start: 20180424, end: 20180501

REACTIONS (2)
  - Inappropriate schedule of drug administration [Unknown]
  - Hiccups [Unknown]

NARRATIVE: CASE EVENT DATE: 20180424
